FAERS Safety Report 21584987 (Version 1)
Quarter: 2022Q4

REPORT INFORMATION
  Report Type: Spontaneous
  Country: LU (occurrence: LU)
  Receive Date: 20221111
  Receipt Date: 20221111
  Transmission Date: 20230113
  Serious: Yes (Hospitalization)
  Sender: FDA-Public Use
  Company Number: None

PATIENT
  Age: 79 Year
  Sex: Female
  Weight: 84 kg

DRUGS (2)
  1. PACLITAXEL [Suspect]
     Active Substance: PACLITAXEL
     Indication: Breast cancer female
     Dosage: 1ST CYCLE OF CHEMOTHERAPY, UNIT DOSE : 147.68 MG, FREQUENCY TIME : 1 CYCLICAL, DURATION : 2 MINUTES
     Route: 065
  2. ZIRABEV [Suspect]
     Active Substance: BEVACIZUMAB-BVZR
     Indication: Breast cancer female
     Dosage: 1ST CYCLE OF CHEMOTHERAPY, UNIT DOSE : 1260 MG, FREQUENCY TIME : 1 CYCLICAL
     Route: 065

REACTIONS (2)
  - Hot flush [Recovering/Resolving]
  - Abdominal pain [Recovering/Resolving]

NARRATIVE: CASE EVENT DATE: 20221010
